FAERS Safety Report 8360811-7 (Version None)
Quarter: 2012Q2

REPORT INFORMATION
  Report Type: 
  Country: None (occurrence: None)
  Receive Date: 20120515
  Receipt Date: 20120504
  Transmission Date: 20120825
  Serious: Yes (Death, Other)
  Sender: FDA-Public Use
  Company Number: FR-CELGENEUS-056-50794-10101837

PATIENT

DRUGS (1)
  1. VIDAZA [Suspect]
     Dosage: 75 MILLIGRAM/SQ. METER
     Route: 058

REACTIONS (9)
  - HAEMORRHAGE [None]
  - PANCYTOPENIA [None]
  - DISEASE PROGRESSION [None]
  - DEATH [None]
  - CEREBROVASCULAR ACCIDENT [None]
  - POLYCHONDRITIS [None]
  - SEPSIS [None]
  - HEPATIC FAILURE [None]
  - TREATMENT FAILURE [None]
